FAERS Safety Report 25217265 (Version 1)
Quarter: 2025Q2

REPORT INFORMATION
  Report Type: Spontaneous
  Country: US (occurrence: US)
  Receive Date: 20250419
  Receipt Date: 20250419
  Transmission Date: 20250716
  Serious: Yes (Other)
  Sender: DR REDDYS
  Company Number: US-MLMSERVICE-20250402-PI463781-00073-4

PATIENT
  Age: 50 Year
  Sex: Male

DRUGS (5)
  1. BUPRENORPHINE\NALOXONE [Suspect]
     Active Substance: BUPRENORPHINE\NALOXONE
     Indication: Drug use disorder
  2. PROPOFOL [Suspect]
     Active Substance: PROPOFOL
     Indication: Alcohol withdrawal syndrome
  3. HYDROMORPHONE [Suspect]
     Active Substance: HYDROMORPHONE
     Indication: Alcohol withdrawal syndrome
  4. FENTANYL [Suspect]
     Active Substance: FENTANYL
     Indication: Alcohol withdrawal syndrome
  5. MIDAZOLAM [Suspect]
     Active Substance: MIDAZOLAM
     Indication: Alcohol withdrawal syndrome
     Route: 042

REACTIONS (2)
  - Drug withdrawal syndrome [Unknown]
  - Agitation [Unknown]
